FAERS Safety Report 5816706-3 (Version None)
Quarter: 2008Q3

REPORT INFORMATION
  Report Type: 
  Country: None (occurrence: None)
  Receive Date: 20080721
  Receipt Date: 20080711
  Transmission Date: 20090109
  Serious: Yes (Other)
  Sender: FDA-Public Use
  Company Number: US-PFIZER INC-2008058310

PATIENT
  Sex: Male

DRUGS (4)
  1. CELEBREX [Suspect]
     Indication: MYALGIA
     Route: 048
  2. SUTENT [Suspect]
     Indication: RENAL CANCER
     Route: 048
     Dates: start: 20071101, end: 20080710
  3. TOPROL-XL [Concomitant]
  4. ATACAND [Concomitant]

REACTIONS (2)
  - HYPERTENSION [None]
  - MYALGIA [None]
